FAERS Safety Report 9465250 (Version 2)
Quarter: 2013Q4

REPORT INFORMATION
  Report Type: Spontaneous
  Country: US (occurrence: US)
  Receive Date: 20130819
  Receipt Date: 20131008
  Transmission Date: 20140711
  Serious: Yes (Other)
  Sender: FDA-Public Use
  Company Number: US-PFIZER INC-2013237132

PATIENT
  Age: 49 Year
  Sex: Female
  Weight: 113 kg

DRUGS (9)
  1. EFFEXOR XR [Suspect]
     Indication: PANIC ATTACK
     Dosage: 300 MG (2 CAPSULES OF 150MG), 1X/DAY
     Route: 048
  2. EFFEXOR XR [Suspect]
     Dosage: UNK
     Route: 048
  3. VENLAFAXINE HCL [Suspect]
     Indication: PANIC ATTACK
     Dosage: 300 MG (2 TABLETS OF 150MG), 1X/DAY
     Route: 048
     Dates: start: 2007, end: 2007
  4. VENLAFAXINE HCL [Suspect]
     Indication: ANXIETY
  5. VENLAFAXINE HCL [Suspect]
     Indication: DEPRESSION
  6. VENLAFAXINE HCL [Suspect]
     Indication: ANXIETY
     Dosage: 300 MG (2 TABLETS OF 150MG), 1X/DAY
     Route: 048
     Dates: start: 201008, end: 20101012
  7. VENLAFAXINE HCL [Suspect]
     Indication: DEPRESSION
  8. CLONAZEPAM [Concomitant]
     Indication: ANXIETY
     Dosage: 2 MG, 1X/DAY
  9. CLONAZEPAM [Concomitant]
     Dosage: 1 MG, 3X/DAY
     Route: 048
     Dates: start: 1999

REACTIONS (11)
  - Lyme disease [Unknown]
  - Blood pressure abnormal [Unknown]
  - Drug ineffective [Unknown]
  - Nausea [Unknown]
  - Headache [Unknown]
  - Malaise [Unknown]
  - Inappropriate schedule of drug administration [Unknown]
  - Dizziness [Unknown]
  - Anxiety [Recovering/Resolving]
  - Depression [Recovering/Resolving]
  - Insomnia [Recovering/Resolving]
